FAERS Safety Report 7059714-X (Version None)
Quarter: 2010Q4

REPORT INFORMATION
  Report Type: 
  Country: None (occurrence: None)
  Receive Date: 20101025
  Receipt Date: 20101011
  Transmission Date: 20110411
  Serious: Yes (Disabling)
  Sender: FDA-Public Use
  Company Number: GB-SOLVAY-00210006169

PATIENT
  Age: 58 Year
  Sex: Female

DRUGS (2)
  1. OESTRADIOL [Concomitant]
     Indication: MENOPAUSE
     Dosage: DAILY DOSE: 25 MILLIGRAM(S)
     Route: 062
     Dates: start: 20081009
  2. UTROGESTAN [Suspect]
     Indication: UTERINE DISORDER
     Dosage: DAILY DOSE: 200 MILLIGRAM(S)
     Route: 048
     Dates: start: 20081024, end: 20081030

REACTIONS (6)
  - DIZZINESS [None]
  - DYSPNOEA [None]
  - EXCESSIVE EYE BLINKING [None]
  - HEADACHE [None]
  - PARAESTHESIA [None]
  - VISION BLURRED [None]
